FAERS Safety Report 14539330 (Version 1)
Quarter: 2018Q1

REPORT INFORMATION
  Report Type: Spontaneous
  Country: CN (occurrence: CN)
  Receive Date: 20180216
  Receipt Date: 20180216
  Transmission Date: 20180509
  Serious: Yes (Death, Other)
  Sender: FDA-Public Use
  Company Number: CN-CIPLA LTD.-2018CN05618

PATIENT

DRUGS (12)
  1. IRINOTECAN [Suspect]
     Active Substance: IRINOTECAN
     Indication: NEUROENDOCRINE CARCINOMA
     Dosage: 240 MG, GIVEN ON DAY 1 FOR 5 CYCLES
     Route: 065
  2. CYCLOPHOSPHAMIDE. [Suspect]
     Active Substance: CYCLOPHOSPHAMIDE
     Indication: NEUROENDOCRINE CARCINOMA
     Dosage: 0.5 MG ON DAY 1 FOR 4 CYCLES
     Route: 065
  3. CISPLATIN. [Suspect]
     Active Substance: CISPLATIN
     Indication: NEUROENDOCRINE CARCINOMA
     Dosage: 20 MG, GIVEN ON DAY 1, ONCE A MONTH FOR ONE COURSE.
     Route: 065
  4. CISPLATIN. [Suspect]
     Active Substance: CISPLATIN
     Dosage: 20 MG,GVEN ON DAY 1-4 FOR 6 CYCLES
     Route: 065
  5. DOXORUBICIN HYDROCHLORIDE. [Suspect]
     Active Substance: DOXORUBICIN HYDROCHLORIDE
     Indication: NEUROENDOCRINE CARCINOMA
     Dosage: 50 MG ON DAY 1-2 AND DAY 21 FOR 4 CYCLES
     Route: 065
  6. VINCRISTINE [Suspect]
     Active Substance: VINCRISTINE
     Indication: NEUROENDOCRINE CARCINOMA
     Dosage: 2 MG ON DAY 1 FOR 4 CYCLES
     Route: 065
  7. ETOPOSIDE. [Suspect]
     Active Substance: ETOPOSIDE
     Dosage: 100 MG, ON DAYS 1-3 FOR 6 CYCLES
  8. CISPLATIN. [Suspect]
     Active Substance: CISPLATIN
     Dosage: 2 CYCLES WERE GIVEN
     Route: 065
  9. ETOPOSIDE. [Suspect]
     Active Substance: ETOPOSIDE
     Indication: NEUROENDOCRINE CARCINOMA
     Dosage: 100 MG, ON DAYS 1-4, ONCE A MONTH FOR ONE COURSE.
     Route: 065
  10. PACLITAXEL. [Suspect]
     Active Substance: PACLITAXEL
     Indication: NEUROENDOCRINE CARCINOMA
     Dosage: 200 MG ON DAY 1 AND DAY 14 FOR 2 CYCLES
     Route: 065
  11. TS-1 [Suspect]
     Active Substance: GIMERACIL\OTERACIL\TEGAFUR
     Indication: NEUROENDOCRINE CARCINOMA
     Dosage: 40 MG ON DAYS 1-10 FOR 5 CYCLES
     Route: 065
  12. ETOPOSIDE. [Suspect]
     Active Substance: ETOPOSIDE
     Dosage: 2 CYCLES WERE GIVEN
     Route: 065

REACTIONS (4)
  - Metastases to lymph nodes [Unknown]
  - Disease recurrence [Unknown]
  - Malignant neoplasm progression [Fatal]
  - Bone marrow failure [Unknown]
